FAERS Safety Report 6777849-3 (Version None)
Quarter: 2010Q2

REPORT INFORMATION
  Report Type: 
  Country: None (occurrence: None)
  Receive Date: 20100618
  Receipt Date: 20100603
  Transmission Date: 20101027
  Serious: Yes (Other)
  Sender: FDA-Public Use
  Company Number: GB-MYLANLABS-2010S1009820

PATIENT
  Sex: Male

DRUGS (1)
  1. BISOPROLOL [Suspect]
     Indication: CARDIAC FAILURE

REACTIONS (2)
  - HALLUCINATION [None]
  - NIGHTMARE [None]
